FAERS Safety Report 20451910 (Version 2)
Quarter: 2022Q1

REPORT INFORMATION
  Report Type: Spontaneous
  Country: JP (occurrence: JP)
  Receive Date: 20220209
  Receipt Date: 20220216
  Transmission Date: 20220423
  Serious: Yes (Other)
  Sender: FDA-Public Use
  Company Number: JP-MTPC-MTPC2022-0002896

PATIENT
  Age: 7 Decade
  Sex: Male

DRUGS (15)
  1. REMICADE [Suspect]
     Active Substance: INFLIXIMAB
     Indication: Colitis ulcerative
     Dosage: 5 MILLIGRAM/KILOGRAM, QD
     Route: 042
  2. GANCICLOVIR [Suspect]
     Active Substance: GANCICLOVIR
     Indication: Cytomegalovirus enterocolitis
     Dosage: 5 MILLIGRAM/KILOGRAM, BID
     Route: 041
  3. SULFASALAZINE [Concomitant]
     Active Substance: SULFASALAZINE
     Dosage: 3600 MILLIGRAM, QD
     Route: 048
  4. SULFASALAZINE [Concomitant]
     Active Substance: SULFASALAZINE
     Dosage: 4500 MILLIGRAM, QD
     Route: 065
  5. SULFASALAZINE [Concomitant]
     Active Substance: SULFASALAZINE
     Dosage: 4000 MILLIGRAM, QD
     Route: 065
  6. IMURAN [Concomitant]
     Active Substance: AZATHIOPRINE
     Dosage: 25 MILLIGRAM, QD
     Route: 065
  7. IMURAN [Concomitant]
     Active Substance: AZATHIOPRINE
     Dosage: 50 MILLIGRAM, QD
     Route: 065
     Dates: end: 201801
  8. IMURAN [Concomitant]
     Active Substance: AZATHIOPRINE
     Dosage: 50 MILLIGRAM, QD
     Route: 065
  9. PREDNISOLONE [Concomitant]
     Active Substance: PREDNISOLONE
     Dosage: 40 MILLIGRAM, QD
     Route: 054
  10. PREDNISOLONE [Concomitant]
     Active Substance: PREDNISOLONE
     Dosage: UNK
     Route: 054
  11. VEDOLIZUMAB [Concomitant]
     Active Substance: VEDOLIZUMAB
     Route: 065
  12. BUDESONIDE [Concomitant]
     Active Substance: BUDESONIDE
     Route: 054
  13. GOLIMUMAB [Concomitant]
     Active Substance: GOLIMUMAB
     Dosage: 200 MILLIGRAM
     Route: 065
  14. GOLIMUMAB [Concomitant]
     Active Substance: GOLIMUMAB
     Dosage: 100 MILLIGRAM
  15. USTEKINUMAB [Concomitant]
     Active Substance: USTEKINUMAB
     Route: 065

REACTIONS (2)
  - Prostate cancer recurrent [Recovered/Resolved]
  - Off label use [Recovered/Resolved]
